FAERS Safety Report 9421754 (Version 3)
Quarter: 2013Q4

REPORT INFORMATION
  Report Type: Report from Study
  Country: CA (occurrence: CA)
  Receive Date: 20130726
  Receipt Date: 20131010
  Transmission Date: 20140711
  Serious: Yes (Other)
  Sender: FDA-Public Use
  Company Number: CA-ROCHE-1253340

PATIENT
  Sex: Female

DRUGS (12)
  1. RITUXAN [Suspect]
     Indication: DERMATOMYOSITIS
     Dosage: DAY 1 AND DAY 15
     Route: 042
     Dates: start: 20120621
  2. PREDNISONE [Suspect]
     Indication: DERMATOMYOSITIS
     Route: 065
  3. ADALAT [Concomitant]
  4. SYNTHROID [Concomitant]
  5. ALENDRONATE [Concomitant]
  6. RAMIPRIL [Concomitant]
  7. METFORMIN [Concomitant]
  8. HYDROMORPHONE [Concomitant]
  9. DIPHENHYDRAMINE HCL [Concomitant]
     Indication: PREMEDICATION
     Route: 048
     Dates: start: 20120621
  10. ACETAMINOPHEN [Concomitant]
     Indication: PREMEDICATION
     Route: 048
     Dates: start: 20120621
  11. METHYLPREDNISOLONE [Concomitant]
     Indication: PREMEDICATION
     Route: 042
     Dates: start: 20120621
  12. CELLCEPT [Concomitant]

REACTIONS (3)
  - Hyperglycaemia [Unknown]
  - Diabetic neuropathy [Unknown]
  - Herpes zoster [Recovered/Resolved]
